FAERS Safety Report 5060348-7 (Version None)
Quarter: 2006Q3

REPORT INFORMATION
  Report Type: 
  Country: None (occurrence: None)
  Receive Date: 20060720
  Receipt Date: 20060706
  Transmission Date: 20061208
  Serious: Yes (Other)
  Sender: FDA-Public Use
  Company Number: 227373

PATIENT
  Age: 50 Year
  Sex: Female

DRUGS (2)
  1. AVASTIN [Suspect]
     Indication: BRONCHIOLOALVEOLAR CARCINOMA
  2. CARBOPLATIN [Suspect]
     Indication: BRONCHIOLOALVEOLAR CARCINOMA

REACTIONS (1)
  - INTERSTITIAL LUNG DISEASE [None]
